FAERS Safety Report 13560512 (Version 1)
Quarter: 2017Q2

REPORT INFORMATION
  Report Type: Spontaneous
  Country: US (occurrence: US)
  Receive Date: 20170518
  Receipt Date: 20170518
  Transmission Date: 20170830
  Serious: No
  Sender: FDA-Public Use
  Company Number: US-TEVA-729181ACC

PATIENT
  Age: 46 Year
  Sex: Male

DRUGS (11)
  1. COPAXONE [Suspect]
     Active Substance: GLATIRAMER ACETATE
     Indication: MULTIPLE SCLEROSIS
     Route: 058
     Dates: start: 20161004
  2. GINSENG-COMP CAP [Concomitant]
  3. APPLE CIDER TAB VINEGAR [Concomitant]
  4. ZINC TAB [Concomitant]
  5. VITAMIN C TAB [Concomitant]
  6. VITAMIN D3 CAP [Concomitant]
  7. COQ10 CAP [Concomitant]
  8. POTASSIUM TAB [Concomitant]
  9. MARINOL CAP [Concomitant]
  10. SELENIUM TAB [Concomitant]
  11. CREATININE CAP [Concomitant]

REACTIONS (1)
  - Drug dose omission [Unknown]

NARRATIVE: CASE EVENT DATE: 201612
